FAERS Safety Report 4389120-8 (Version None)
Quarter: 2004Q2

REPORT INFORMATION
  Report Type: 
  Country: None (occurrence: None)
  Receive Date: 20040628
  Receipt Date: 20040617
  Transmission Date: 20050107
  Serious: Yes (Other)
  Sender: FDA-Public Use
  Company Number: CIP04001307

PATIENT
  Age: 69 Year
  Sex: Female

DRUGS (1)
  1. ACTONEL [Suspect]
     Indication: OSTEOPOROSIS
     Dosage: 35 MG ONCE WEEKLY, ORAL
     Route: 048
     Dates: start: 20040329, end: 20040405

REACTIONS (4)
  - CHEST PAIN [None]
  - DYSGEUSIA [None]
  - HYPERTONIA [None]
  - HYPOPARATHYROIDISM [None]
